FAERS Safety Report 13843171 (Version 1)
Quarter: 2017Q3

REPORT INFORMATION
  Report Type: Spontaneous
  Country: US (occurrence: US)
  Receive Date: 20170808
  Receipt Date: 20170808
  Transmission Date: 20171127
  Serious: Yes (Hospitalization, Other)
  Sender: FDA-Public Use
  Company Number: US-ROCHE-1973154

PATIENT
  Age: 17 Year
  Sex: Male

DRUGS (10)
  1. FLUTICASONE PROPIONATE. [Suspect]
     Active Substance: FLUTICASONE PROPIONATE
     Indication: HYPERSENSITIVITY
     Route: 065
  2. XOPENEX [Concomitant]
     Active Substance: LEVALBUTEROL HYDROCHLORIDE
  3. SINGULAIR [Concomitant]
     Active Substance: MONTELUKAST SODIUM
  4. FLONASE [Suspect]
     Active Substance: FLUTICASONE PROPIONATE
     Indication: HYPERSENSITIVITY
     Dosage: FLONASE OTC UNSPECIFIED INGREDIENT NASAL SPRAY
     Route: 045
  5. FLONASE [Suspect]
     Active Substance: FLUTICASONE PROPIONATE
     Indication: HYPERSENSITIVITY
     Route: 045
  6. CLARITIN (UNITED STATES) [Concomitant]
  7. XOLAIR [Suspect]
     Active Substance: OMALIZUMAB
     Indication: HYPERSENSITIVITY
     Route: 065
  8. XOLAIR [Suspect]
     Active Substance: OMALIZUMAB
     Indication: ASTHMA
  9. ADVAIR HFA [Suspect]
     Active Substance: FLUTICASONE PROPIONATE\SALMETEROL XINAFOATE
     Indication: ASTHMA
     Dosage: 250/50 UG, ADVAIR DISKUS, 1 PUFF
     Route: 055
     Dates: start: 2006, end: 2016
  10. FLOVENT [Suspect]
     Active Substance: FLUTICASONE PROPIONATE
     Indication: ASTHMA
     Dosage: FLOVENT INHALER, 2 PUFFS
     Route: 055

REACTIONS (18)
  - Cholecystectomy [Recovered/Resolved]
  - Irritability [Recovered/Resolved]
  - Dark circles under eyes [Recovered/Resolved]
  - Pneumonia [Recovered/Resolved]
  - Lethargy [Recovered/Resolved]
  - Hot flush [Recovered/Resolved]
  - Respiratory tract congestion [Not Recovered/Not Resolved]
  - Underdose [Unknown]
  - Abdominal discomfort [Recovered/Resolved]
  - Pallor [Recovered/Resolved]
  - Diarrhoea [Recovered/Resolved]
  - Pyrexia [Not Recovered/Not Resolved]
  - Dyspnoea [Recovered/Resolved]
  - Immunosuppression [Recovered/Resolved]
  - Adrenal suppression [Recovered/Resolved]
  - Atypical pneumonia [Recovered/Resolved]
  - Retching [Recovered/Resolved]
  - Asthma [Unknown]

NARRATIVE: CASE EVENT DATE: 201611
